FAERS Safety Report 6815827-6 (Version None)
Quarter: 2010Q3

REPORT INFORMATION
  Report Type: 
  Country: None (occurrence: None)
  Receive Date: 20100705
  Receipt Date: 20100623
  Transmission Date: 20110219
  Serious: Yes (Other)
  Sender: FDA-Public Use
  Company Number: US-BIOGENIDEC-2010BI019266

PATIENT
  Age: 41 Year
  Sex: Male

DRUGS (10)
  1. TYSABRI [Suspect]
     Indication: MULTIPLE SCLEROSIS
     Route: 042
     Dates: start: 20080716, end: 20100204
  2. CARBATROL [Concomitant]
     Indication: EYE PAIN
  3. TRAMADOL HCL [Concomitant]
     Indication: EYE PAIN
     Dates: start: 20100101
  4. TRAMADOL HCL [Concomitant]
     Indication: PAIN
     Dates: start: 20100101
  5. TRAMADOL HCL [Concomitant]
     Indication: MUSCLE SPASMS
     Dates: start: 20100101
  6. HYDROXYZINE [Concomitant]
     Indication: ABDOMINAL DISCOMFORT
  7. NAPROXEN [Concomitant]
     Indication: SWELLING
  8. FUROSEMIDE [Concomitant]
     Indication: FLUID RETENTION
  9. ALBUTEROL SULATE [Concomitant]
     Indication: PULMONARY FUNCTION TEST ABNORMAL
  10. MICARDIS [Concomitant]
     Indication: HYPERTENSION

REACTIONS (8)
  - CONFUSIONAL STATE [None]
  - FATIGUE [None]
  - LOSS OF CONSCIOUSNESS [None]
  - MENTAL IMPAIRMENT [None]
  - MUSCLE SPASMS [None]
  - PAIN [None]
  - SINUSITIS [None]
  - SKIN LESION [None]
